FAERS Safety Report 7389463-X (Version None)
Quarter: 2011Q2

REPORT INFORMATION
  Report Type: 
  Country: None (occurrence: None)
  Receive Date: 20110401
  Receipt Date: 20110329
  Transmission Date: 20111010
  Serious: Yes (Other)
  Sender: FDA-Public Use
  Company Number: US-BRISTOL-MYERS SQUIBB COMPANY-15643778

PATIENT
  Age: 70 Year
  Sex: Female
  Weight: 76 kg

DRUGS (4)
  1. LANTUS [Suspect]
  2. WARFARIN SODIUM [Suspect]
     Indication: CARDIOVASCULAR EVENT PROPHYLAXIS
     Dates: start: 20090101
  3. METOPROLOL [Suspect]
  4. METFORMIN HCL [Suspect]

REACTIONS (2)
  - ENURESIS [None]
  - LYMPHOMA [None]
